FAERS Safety Report 19222504 (Version 1)
Quarter: 2021Q2

REPORT INFORMATION
  Report Type: Spontaneous
  Country: US (occurrence: US)
  Receive Date: 20210506
  Receipt Date: 20210506
  Transmission Date: 20210717
  Serious: No
  Sender: FDA-Public Use
  Company Number: None

PATIENT
  Age: 79 Year
  Sex: Male
  Weight: 72 kg

DRUGS (1)
  1. INLYTA [Suspect]
     Active Substance: AXITINIB
     Indication: RENAL CELL CARCINOMA
     Route: 048
     Dates: start: 20210413, end: 20210425

REACTIONS (5)
  - Dyskinesia [None]
  - Confusional state [None]
  - Speech disorder [None]
  - Hypertension [None]
  - Seizure like phenomena [None]

NARRATIVE: CASE EVENT DATE: 20210425
